FAERS Safety Report 19654237 (Version 4)
Quarter: 2021Q3

REPORT INFORMATION
  Report Type: Other
  Country: DE (occurrence: DE)
  Receive Date: 20210804
  Receipt Date: 20210824
  Transmission Date: 20211014
  Serious: Yes (Other)
  Sender: FDA-Public Use
  Company Number: DE-CELLTRION INC.-2021DE009195

PATIENT

DRUGS (13)
  1. DOCETAXEL. [Suspect]
     Active Substance: DOCETAXEL
     Dosage: UNK
     Route: 065
     Dates: start: 20210330
  2. PERTUZUMAB. [Suspect]
     Active Substance: PERTUZUMAB
     Indication: BREAST CANCER METASTATIC
     Dosage: 840 MG, ON THE FIRST DAY OF THE FIRST CYCLE
     Route: 042
     Dates: start: 20210325, end: 20210325
  3. DOCETAXEL. [Suspect]
     Active Substance: DOCETAXEL
     Dosage: UNK
     Route: 065
     Dates: start: 20210326, end: 20210326
  4. DOCETAXEL. [Suspect]
     Active Substance: DOCETAXEL
     Indication: BREAST CANCER METASTATIC
     Dosage: UNK
     Route: 065
     Dates: start: 20210325, end: 20210325
  5. KANJINTI [Suspect]
     Active Substance: TRASTUZUMAB-ANNS
     Indication: PRODUCT USED FOR UNKNOWN INDICATION
     Dosage: UNK
     Route: 065
  6. FEBUXOSTAT. [Concomitant]
     Active Substance: FEBUXOSTAT
     Dosage: 80 MG, QD
  7. TRASTUZUMAB (UNKNOWN) [Suspect]
     Active Substance: TRASTUZUMAB
     Indication: BREAST CANCER METASTATIC
     Dosage: 640 MG, ON THE SECOND DAY OF THE FIRST CYCLE, 420 MG
     Route: 042
     Dates: start: 20210325, end: 2021
  8. DEXAMETHASON [DEXAMETHASONE] [Concomitant]
     Active Substance: DEXAMETHASONE
     Dosage: 8 MG, BEFORE INFUSION OF TRASTUZUMAB, PERJETA FOR 15 MINUTES
     Route: 042
  9. TORASEMIDE [Concomitant]
     Active Substance: TORSEMIDE
     Dosage: 10 MG, QD
  10. PANTOPRAZOLE [Concomitant]
     Active Substance: PANTOPRAZOLE
     Dosage: 40 MG, 0.5 A DAY
  11. LAXOFALK [Concomitant]
     Dosage: 40 MG, 0.33 DAILY
  12. GRANISETRON [Concomitant]
     Active Substance: GRANISETRON
     Indication: PREMEDICATION
     Dosage: 3 MG, AMPULE
     Route: 042
  13. HISTAKUT [Concomitant]
     Active Substance: DIMETHINDENE MALEATE
     Dosage: 4 MG, BEFORE INFUSION OF TRASTUZUMAB
     Route: 042

REACTIONS (8)
  - Acute kidney injury [Recovered/Resolved]
  - Folate deficiency [Unknown]
  - Overdose [Unknown]
  - Acute hepatic failure [Recovered/Resolved]
  - Haemolytic anaemia [Recovered/Resolved]
  - Off label use [Unknown]
  - Metastases to bone marrow [Unknown]
  - Infusion related reaction [Recovering/Resolving]

NARRATIVE: CASE EVENT DATE: 20210325
